FAERS Safety Report 5099582-9 (Version None)
Quarter: 2006Q3

REPORT INFORMATION
  Report Type: 
  Country: None (occurrence: None)
  Receive Date: 20060906
  Receipt Date: 20060822
  Transmission Date: 20061208
  Serious: Yes (Hospitalization, Other)
  Sender: FDA-Public Use
  Company Number: 2006093377

PATIENT
  Age: 43 Year
  Sex: Male
  Weight: 99.7913 kg

DRUGS (2)
  1. DILANTIN KAPSEAL [Suspect]
     Indication: CONVULSION
     Dosage: 300 MG (300 MG, 1 IN 1 D)
     Dates: start: 20060309, end: 20060718
  2. DILVALPROEX (VALPROIC ACID) [Suspect]
     Indication: DRUG USE FOR UNKNOWN INDICATION
     Dosage: 1500 MG (500 MG, 3 IN 1 D)
     Dates: start: 20060609

REACTIONS (42)
  - ABDOMINAL PAIN UPPER [None]
  - ANTICONVULSANT DRUG LEVEL DECREASED [None]
  - ARTHRALGIA [None]
  - ASTERIXIS [None]
  - AURA [None]
  - CENTRAL NERVOUS SYSTEM LESION [None]
  - CEREBRAL ATROPHY [None]
  - CONDITION AGGRAVATED [None]
  - CONFUSIONAL STATE [None]
  - COORDINATION ABNORMAL [None]
  - DEMYELINATION [None]
  - DISTURBANCE IN ATTENTION [None]
  - DIZZINESS [None]
  - DRUG INEFFECTIVE [None]
  - DRUG INTERACTION [None]
  - DYSARTHRIA [None]
  - DYSPHONIA [None]
  - FATIGUE [None]
  - GRAND MAL CONVULSION [None]
  - HANGOVER [None]
  - HEADACHE [None]
  - HOT FLUSH [None]
  - ILL-DEFINED DISORDER [None]
  - INCOHERENT [None]
  - INJURY [None]
  - INSOMNIA [None]
  - IRRITABILITY [None]
  - LOSS OF CONSCIOUSNESS [None]
  - MEMORY IMPAIRMENT [None]
  - MIXED HYPERLIPIDAEMIA [None]
  - MOOD SWINGS [None]
  - MUSCLE TWITCHING [None]
  - NAUSEA [None]
  - NERVOUSNESS [None]
  - POLLAKIURIA [None]
  - SOMNOLENCE [None]
  - SPEECH DISORDER [None]
  - THINKING ABNORMAL [None]
  - THIRST [None]
  - THROAT IRRITATION [None]
  - TREMOR [None]
  - VOMITING [None]
